FAERS Safety Report 10054437 (Version 1)
Quarter: 2014Q2

REPORT INFORMATION
  Report Type: Spontaneous
  Country: US (occurrence: US)
  Receive Date: 20140402
  Receipt Date: 20140402
  Transmission Date: 20141212
  Serious: No
  Sender: FDA-Public Use
  Company Number: US-AMGEN-USASP2014020828

PATIENT
  Age: 51 Year
  Sex: Female
  Weight: 90.7 kg

DRUGS (7)
  1. ENBREL [Suspect]
     Indication: PSORIASIS
     Dosage: UNK
     Route: 065
     Dates: start: 2013
  2. HUMIRA [Suspect]
     Indication: PSORIASIS
     Dosage: 80 MG, QD
     Route: 065
     Dates: start: 201308, end: 201308
  3. HUMIRA [Suspect]
     Dosage: 40 MG, Q2WK
     Route: 065
     Dates: start: 2013, end: 201310
  4. LEVOXYL [Concomitant]
     Indication: HYPOTHYROIDISM
     Dosage: UNK
  5. EFFEXOR [Concomitant]
     Indication: DEPRESSION
     Dosage: UNK
  6. LIPITOR [Concomitant]
     Indication: BLOOD CHOLESTEROL INCREASED
     Dosage: UNK
  7. SORIATANE [Concomitant]
     Indication: PSORIASIS
     Dosage: UNK

REACTIONS (4)
  - Rash [Unknown]
  - Rash pruritic [Recovered/Resolved]
  - Hypersensitivity [Recovered/Resolved]
  - Psoriasis [Unknown]
